FAERS Safety Report 5934100-1 (Version None)
Quarter: 2008Q4

REPORT INFORMATION
  Report Type: 
  Country: None (occurrence: None)
  Receive Date: 20081024
  Receipt Date: 20081015
  Transmission Date: 20090506
  Serious: Yes (Hospitalization)
  Sender: FDA-Public Use
  Company Number: 16439

PATIENT

DRUGS (1)
  1. MORPHINE SULFATE ER TABLETS 60MG (ETHEX CORP.) [Suspect]

REACTIONS (5)
  - CHEST PAIN [None]
  - DEPRESSION [None]
  - HYPERHIDROSIS [None]
  - SUICIDAL IDEATION [None]
  - TRANSIENT ISCHAEMIC ATTACK [None]
